FAERS Safety Report 8224150-7 (Version None)
Quarter: 2012Q1

REPORT INFORMATION
  Report Type: 
  Country: None (occurrence: None)
  Receive Date: 20120321
  Receipt Date: 20120313
  Transmission Date: 20120608
  Serious: Yes (Hospitalization, Other)
  Sender: FDA-Public Use
  Company Number: US-BAYER-2011-049363

PATIENT
  Age: 20 Year
  Sex: Female
  Weight: 73.56 kg

DRUGS (6)
  1. YASMIN [Suspect]
     Indication: MENSTRUAL CYCLE MANAGEMENT
  2. YASMIN [Suspect]
     Indication: CONTRACEPTION
     Dosage: UNK
     Route: 048
     Dates: start: 20010101, end: 20050101
  3. YASMIN [Suspect]
     Indication: ACNE
  4. ALLEGRA [Concomitant]
  5. MINOCYCLINE HCL [Concomitant]
  6. ASCORBIC ACID [Concomitant]
     Dosage: 250 MG, QD
     Route: 048
     Dates: start: 19850101

REACTIONS (4)
  - CHOLECYSTITIS CHRONIC [None]
  - ABDOMINAL PAIN UPPER [None]
  - BILE DUCT STONE [None]
  - CHOLELITHIASIS [None]
